FAERS Safety Report 19278776 (Version 8)
Quarter: 2021Q4

REPORT INFORMATION
  Report Type: Report from Study
  Country: US (occurrence: US)
  Receive Date: 20210520
  Receipt Date: 20211229
  Transmission Date: 20220304
  Serious: Yes (Hospitalization)
  Sender: FDA-Public Use
  Company Number: US-GLAXOSMITHKLINE-US2021GSK026803

PATIENT
  Age: 62 Year
  Sex: Female

DRUGS (45)
  1. COBIMETINIB [Suspect]
     Active Substance: COBIMETINIB
     Indication: Ovarian cancer
     Dosage: 60 MG, QD
     Route: 048
     Dates: start: 20201230, end: 20210125
  2. COBIMETINIB [Suspect]
     Active Substance: COBIMETINIB
     Dosage: 40 MG, QD
     Route: 048
     Dates: start: 20210506
  3. NIRAPARIB [Suspect]
     Active Substance: NIRAPARIB
     Indication: Ovarian cancer
     Dosage: 200 MG, QD
     Route: 048
     Dates: start: 20201230, end: 20210125
  4. NIRAPARIB [Suspect]
     Active Substance: NIRAPARIB
     Dosage: 200 MG, QD
     Route: 048
     Dates: start: 20210506
  5. ATEZOLIZUMAB [Suspect]
     Active Substance: ATEZOLIZUMAB
     Indication: Ovarian cancer
     Dosage: 840 MG, Z-EVERY 2 WEEKS
     Route: 041
     Dates: start: 20201230, end: 20201230
  6. ATEZOLIZUMAB [Suspect]
     Active Substance: ATEZOLIZUMAB
     Dosage: 840 MG, Z-EVERY 2 WEEKS
     Route: 041
     Dates: start: 20210115, end: 20210115
  7. ATEZOLIZUMAB [Suspect]
     Active Substance: ATEZOLIZUMAB
     Dosage: 840 MG, Z-EVERY 2 WEEKS
     Route: 041
     Dates: start: 20210423, end: 20210423
  8. SODIUM CHLORIDE [Concomitant]
     Active Substance: SODIUM CHLORIDE
     Indication: Headache
     Dosage: UNK
     Route: 042
     Dates: start: 20210115, end: 20210115
  9. SODIUM CHLORIDE [Concomitant]
     Active Substance: SODIUM CHLORIDE
     Dosage: 1000 ML, QD
     Route: 042
     Dates: start: 20210125, end: 20210125
  10. SODIUM CHLORIDE [Concomitant]
     Active Substance: SODIUM CHLORIDE
     Dosage: 1000 MG, PRN
     Route: 042
     Dates: start: 20210217
  11. SODIUM CHLORIDE [Concomitant]
     Active Substance: SODIUM CHLORIDE
     Dosage: 1000 MG, QD
     Route: 042
     Dates: start: 20210326, end: 20210326
  12. BENADRYL [Concomitant]
     Active Substance: DIPHENHYDRAMINE HYDROCHLORIDE
     Indication: Dermatitis acneiform
     Dosage: 25 MG, PRN
     Route: 048
     Dates: start: 20210109
  13. MAGNESIUM SULFATE [Concomitant]
     Active Substance: MAGNESIUM SULFATE
     Indication: Hypomagnesaemia
     Dosage: UNK
     Route: 042
     Dates: start: 20210115, end: 20210115
  14. MAGNESIUM SULFATE [Concomitant]
     Active Substance: MAGNESIUM SULFATE
     Dosage: 4 G, QD
     Route: 042
     Dates: start: 20210119, end: 20210119
  15. MAGNESIUM SULFATE [Concomitant]
     Active Substance: MAGNESIUM SULFATE
     Dosage: (1 IN 1 AS REQUIRED)
     Route: 042
     Dates: start: 20210326, end: 20210326
  16. MAGNESIUM SULFATE [Concomitant]
     Active Substance: MAGNESIUM SULFATE
     Dosage: 2 G, QD
     Route: 042
     Dates: start: 20210215, end: 20210912
  17. HYDROCORTISONE [Concomitant]
     Active Substance: HYDROCORTISONE
     Indication: Dermatitis acneiform
     Dosage: 2.5 %, BID
     Route: 061
     Dates: start: 20210115, end: 20210129
  18. MIRALAX [Concomitant]
     Active Substance: POLYETHYLENE GLYCOL 3350
     Indication: Constipation
     Dosage: 17 G, PRN
     Route: 048
     Dates: start: 20210110, end: 20210111
  19. MIRALAX [Concomitant]
     Active Substance: POLYETHYLENE GLYCOL 3350
     Indication: Abdominal pain upper
     Dosage: 17 G, QD
     Route: 048
     Dates: start: 20210208
  20. MACROBID [Concomitant]
     Active Substance: NITROFURANTOIN\NITROFURANTOIN MONOHYDRATE
     Indication: Urinary tract infection
     Dosage: 100 MG, BID
     Route: 048
     Dates: start: 20210210, end: 20210217
  21. IMITREX [Concomitant]
     Active Substance: SUMATRIPTAN SUCCINATE
     Indication: Headache
     Dosage: 50 MG, PRN
     Route: 048
     Dates: start: 20210205, end: 20210220
  22. COMPAZINE [Concomitant]
     Active Substance: PROCHLORPERAZINE MALEATE
     Indication: Nausea
     Dosage: 10 MG, PRN
     Route: 042
     Dates: start: 20210125, end: 20210125
  23. LOSARTAN [Concomitant]
     Active Substance: LOSARTAN
     Indication: Hypertension
     Dosage: 25 MG, QD
     Dates: start: 20210305
  24. GLIPIZIDE [Concomitant]
     Active Substance: GLIPIZIDE
     Indication: Hyperglycaemia
     Dosage: 2.5 MG, BID
     Route: 048
     Dates: start: 20210316, end: 20210324
  25. GLIPIZIDE [Concomitant]
     Active Substance: GLIPIZIDE
     Dosage: 5 MG, BID
     Dates: start: 20210324, end: 20210518
  26. GLIPIZIDE [Concomitant]
     Active Substance: GLIPIZIDE
     Dosage: 10 MG, BID
     Route: 048
     Dates: start: 20210519
  27. LOVENOX [Concomitant]
     Active Substance: ENOXAPARIN SODIUM
     Indication: Anticoagulant therapy
     Dosage: 40 MG, QD
     Route: 058
     Dates: start: 20210508, end: 20210509
  28. LOVENOX [Concomitant]
     Active Substance: ENOXAPARIN SODIUM
     Dosage: 40 MG, QD
     Route: 058
     Dates: start: 20210629
  29. LOVENOX [Concomitant]
     Active Substance: ENOXAPARIN SODIUM
     Dosage: 80 MG, BID
     Route: 042
     Dates: start: 20210611, end: 20210713
  30. LOVENOX [Concomitant]
     Active Substance: ENOXAPARIN SODIUM
     Dosage: 40 MG, QD
     Route: 058
     Dates: start: 20210713
  31. SENOKOT [Concomitant]
     Active Substance: SENNOSIDES
     Indication: Constipation
     Dosage: 8.6 MG, QD
     Route: 048
     Dates: start: 20210508, end: 20210509
  32. BACTRIM DS [Concomitant]
     Active Substance: SULFAMETHOXAZOLE\TRIMETHOPRIM
     Indication: Urinary tract infection
     Dosage: 800 MG, BID
     Route: 048
     Dates: start: 20210521, end: 20210527
  33. MUCINEX DM [Concomitant]
     Active Substance: DEXTROMETHORPHAN HYDROBROMIDE\GUAIFENESIN
     Indication: Nasal congestion
     Dosage: 1200 MG, BID
     Route: 048
     Dates: start: 20210607, end: 20210608
  34. TYLENOL [Concomitant]
     Active Substance: ACETAMINOPHEN
     Indication: Pyrexia
     Dosage: 1000 MG, PRN
     Route: 048
     Dates: start: 20210115, end: 20210118
  35. ONDANSETRON [Concomitant]
     Active Substance: ONDANSETRON
     Indication: Nausea
     Dosage: 4 MG, 1 IN 1 AS REQ
     Route: 042
     Dates: start: 20210507, end: 20210509
  36. SENNA [Concomitant]
     Active Substance: SENNA LEAF\SENNOSIDES\SENNOSIDES A AND B
     Indication: Constipation
     Dosage: 17.2 MG, 2 IN 1 D
     Route: 048
     Dates: start: 20210507, end: 20210507
  37. CALCIUM CARBONATE [Concomitant]
     Active Substance: CALCIUM CARBONATE
     Indication: Nausea
     Dosage: 500 MG, PRN
     Route: 048
     Dates: start: 20210507, end: 20210507
  38. ACETAMINOPHEN [Concomitant]
     Active Substance: ACETAMINOPHEN
     Indication: Pain
     Dosage: 1000 MG, PRN
     Route: 048
     Dates: start: 20210507, end: 20210507
  39. OXYCODONE [Concomitant]
     Active Substance: OXYCODONE
     Indication: Pain
     Dosage: 5 MG, PRN
     Route: 048
     Dates: start: 20210507, end: 20210509
  40. OXYCODONE [Concomitant]
     Active Substance: OXYCODONE
     Dosage: UNK
     Route: 048
     Dates: start: 20210509, end: 20210509
  41. HUMAN RED BLOOD CELL [Concomitant]
     Active Substance: HUMAN RED BLOOD CELL
     Indication: Anaemia
     Dosage: 1 UNIT
     Route: 042
     Dates: start: 20210614, end: 20210628
  42. CEFEPIME [Concomitant]
     Active Substance: CEFEPIME HYDROCHLORIDE
     Dosage: 2 G, TID
     Route: 042
     Dates: start: 20210612, end: 20210629
  43. ZYVOX [Concomitant]
     Active Substance: LINEZOLID
     Dosage: 600 MG, BID
     Route: 048
     Dates: start: 20210626, end: 20210628
  44. LEVAQUIN TABLET [Concomitant]
     Dosage: 500 MG, QD
     Route: 048
     Dates: start: 20210614, end: 20210623
  45. MAXIPIME [Concomitant]
     Active Substance: CEFEPIME HYDROCHLORIDE
     Dosage: 2 G, 3 IN 1 WEEK
     Route: 042
     Dates: start: 20210626, end: 20210629

REACTIONS (2)
  - Pancreatitis [Recovered/Resolved]
  - Subretinal fluid [Not Recovered/Not Resolved]

NARRATIVE: CASE EVENT DATE: 20210126
